FAERS Safety Report 6318206-3 (Version None)
Quarter: 2009Q3

REPORT INFORMATION
  Report Type: 
  Country: None (occurrence: None)
  Receive Date: 20090821
  Receipt Date: 20090817
  Transmission Date: 20100115
  Serious: Yes (Other)
  Sender: FDA-Public Use
  Company Number: B0589102A

PATIENT
  Age: 64 Year
  Sex: Male

DRUGS (5)
  1. ROPINIROLE [Suspect]
     Indication: PARKINSON'S DISEASE
     Route: 048
  2. DONEPEZIL HCL [Concomitant]
     Route: 065
  3. LEVODOPA [Concomitant]
     Route: 065
  4. CABERGOLINE [Concomitant]
     Route: 065
  5. DOMPERIDONE [Concomitant]
     Route: 065

REACTIONS (2)
  - HALLUCINATION [None]
  - MALAISE [None]
